FAERS Safety Report 5109722-0 (Version None)
Quarter: 2006Q3

REPORT INFORMATION
  Report Type: 
  Country: None (occurrence: None)
  Receive Date: 20060918
  Receipt Date: 20060831
  Transmission Date: 20061208
  Serious: Yes (Life-Threatening, Hospitalization)
  Sender: FDA-Public Use
  Company Number: DSA_60868_2006

PATIENT
  Age: 54 Year
  Sex: Male
  Weight: 74.027 kg

DRUGS (7)
  1. DIHYDERGOT [Suspect]
     Indication: ORTHOSTATIC HYPOTENSION
     Dosage: 3 MG QDAY PO
     Route: 048
     Dates: start: 19990308, end: 20060402
  2. KEISHIBUKURYOUGAN [Concomitant]
  3. PROMETHAZINE HCL [Concomitant]
  4. RISPERDAL [Concomitant]
  5. HALOPERIDOL [Concomitant]
  6. HIRNAMIN [Concomitant]
  7. ARTANE [Concomitant]

REACTIONS (3)
  - HYPERTHYROIDISM [None]
  - INTERSTITIAL LUNG DISEASE [None]
  - PLEURAL EFFUSION [None]
